FAERS Safety Report 5095055-8 (Version None)
Quarter: 2006Q3

REPORT INFORMATION
  Report Type: 
  Country: None (occurrence: None)
  Receive Date: 20060901
  Receipt Date: 20060713
  Transmission Date: 20061208
  Serious: Yes (Other)
  Sender: FDA-Public Use
  Company Number: BR-ABBOTT-06P-020-0338126-00

PATIENT
  Sex: Male

DRUGS (3)
  1. VALPAKINE TABLETS [Suspect]
     Indication: EPILEPSY
     Route: 048
     Dates: start: 20060601, end: 20060601
  2. VALPAKINE TABLETS [Suspect]
     Route: 048
     Dates: start: 19960101, end: 20060601
  3. LAMOTRIGINE [Concomitant]
     Indication: EPILEPSY
     Route: 048
     Dates: start: 19960101

REACTIONS (5)
  - CONVULSION [None]
  - DIZZINESS [None]
  - DRUG INEFFECTIVE [None]
  - HEADACHE [None]
  - SOMNOLENCE [None]
